FAERS Safety Report 25761666 (Version 1)
Quarter: 2025Q3

REPORT INFORMATION
  Report Type: Spontaneous
  Country: US (occurrence: US)
  Receive Date: 20250904
  Receipt Date: 20250904
  Transmission Date: 20251021
  Serious: Yes (Hospitalization)
  Sender: ELI LILLY AND COMPANY
  Company Number: US-ELI_LILLY_AND_COMPANY-US202508026505

PATIENT
  Age: 63 Year
  Sex: Female

DRUGS (4)
  1. INSULIN LISPRO [Suspect]
     Active Substance: INSULIN LISPRO
     Indication: Type 1 diabetes mellitus
     Route: 058
     Dates: start: 202207
  2. INSULIN LISPRO [Suspect]
     Active Substance: INSULIN LISPRO
     Indication: Type 1 diabetes mellitus
     Route: 058
     Dates: start: 202207
  3. INSULIN LISPRO [Suspect]
     Active Substance: INSULIN LISPRO
     Route: 058
  4. INSULIN LISPRO [Suspect]
     Active Substance: INSULIN LISPRO
     Route: 058

REACTIONS (4)
  - Diabetic ketoacidosis [Recovered/Resolved]
  - Blood glucose increased [Recovered/Resolved]
  - Blood glucose decreased [Recovered/Resolved]
  - Incorrect product administration duration [Unknown]

NARRATIVE: CASE EVENT DATE: 20250112
